FAERS Safety Report 12342172 (Version 1)
Quarter: 2016Q2

REPORT INFORMATION
  Report Type: Spontaneous
  Country: US (occurrence: US)
  Receive Date: 20160506
  Receipt Date: 20160506
  Transmission Date: 20160815
  Serious: No
  Sender: FDA-Public Use
  Company Number: US-ANACOR-2016ANA00089

PATIENT
  Sex: Male
  Weight: 99.77 kg

DRUGS (2)
  1. UNSPECIFIED DIABETES PILL [Concomitant]
  2. KERYDIN [Suspect]
     Active Substance: TAVABOROLE
     Indication: ONYCHOMYCOSIS
     Dosage: UNK UNK, 1X/DAY
     Route: 061
     Dates: start: 201601

REACTIONS (3)
  - Application site pain [Recovered/Resolved]
  - Application site discolouration [Recovered/Resolved]
  - Application site irritation [Recovered/Resolved]

NARRATIVE: CASE EVENT DATE: 2016
